FAERS Safety Report 4772328-7 (Version None)
Quarter: 2005Q3

REPORT INFORMATION
  Report Type: 
  Country: None (occurrence: None)
  Receive Date: 20050916
  Receipt Date: 20050902
  Transmission Date: 20060218
  Serious: Yes (Death)
  Sender: FDA-Public Use
  Company Number: 2005S1007575

PATIENT

DRUGS (9)
  1. CLOZAPINE [Suspect]
     Indication: SCHIZOPHRENIA
     Dosage: SEE IMAGE
     Route: 048
     Dates: start: 19991201, end: 20050701
  2. CLOZAPINE [Suspect]
     Indication: SCHIZOPHRENIA
     Dosage: 100 MG, HS, PO
     Route: 048
     Dates: start: 19991201
  3. MORPHINE [Concomitant]
  4. PARACETAMOL/HYDROCODONE BITARTRATE [Concomitant]
  5. ESCITALOPRAM OXALATE [Concomitant]
  6. LANSOPRAZOLE [Concomitant]
  7. PARACETAMOL [Concomitant]
  8. IPRATROPIUM BROMIDE/SALBUTAMOL SULFATE [Concomitant]
  9. VITAMINS [Concomitant]

REACTIONS (1)
  - DEATH [None]
